FAERS Safety Report 13231313 (Version 2)
Quarter: 2017Q1

REPORT INFORMATION
  Report Type: Spontaneous
  Country: RU (occurrence: RU)
  Receive Date: 20170214
  Receipt Date: 20170216
  Transmission Date: 20170428
  Serious: Yes (Other)
  Sender: FDA-Public Use
  Company Number: RU-ACTELION-A-CH2017-149393

PATIENT
  Age: 23 Year
  Sex: Female
  Weight: 55 kg

DRUGS (3)
  1. OPSUMIT [Suspect]
     Active Substance: MACITENTAN
     Indication: PULMONARY ARTERIAL HYPERTENSION
     Dosage: 10 MG, OD
     Route: 048
     Dates: start: 20170125, end: 20170128
  2. VEROSPIRON [Concomitant]
     Active Substance: SPIRONOLACTONE
  3. CAPOTEN [Concomitant]
     Active Substance: CAPTOPRIL

REACTIONS (3)
  - Discomfort [Recovered/Resolved]
  - Oedema [Recovered/Resolved]
  - Abdominal distension [Recovered/Resolved]

NARRATIVE: CASE EVENT DATE: 20170126
